FAERS Safety Report 8624509-X (Version None)
Quarter: 2012Q3

REPORT INFORMATION
  Report Type: 
  Country: None (occurrence: None)
  Receive Date: 20120810
  Receipt Date: 20120726
  Transmission Date: 20120928
  Serious: Yes (Life-Threatening)
  Sender: FDA-Public Use
  Company Number: 2012MA009554

PATIENT
  Age: 25 Year
  Sex: Female

DRUGS (5)
  1. PROPRANOLOL [Concomitant]
  2. OLANZAPINE [Concomitant]
  3. METHADONE HCL [Concomitant]
  4. VENLAFAXINE HCL [Suspect]
     Indication: DEPRESSION
     Dosage: 150 MG; BID; PO
     Route: 048
     Dates: start: 20120501, end: 20120710
  5. CODEINE SULFATE [Concomitant]

REACTIONS (2)
  - GRAND MAL CONVULSION [None]
  - HEADACHE [None]
